FAERS Safety Report 16901924 (Version 1)
Quarter: 2019Q4

REPORT INFORMATION
  Report Type: Spontaneous
  Country: GB (occurrence: GB)
  Receive Date: 20191010
  Receipt Date: 20191010
  Transmission Date: 20200122
  Serious: Yes (Other)
  Sender: FDA-Public Use
  Company Number: GB-AMGEN-GBRSP2019162678

PATIENT
  Age: 58 Year
  Sex: Female
  Weight: 64 kg

DRUGS (9)
  1. FERROUS FUMARATE [Concomitant]
     Active Substance: FERROUS FUMARATE
     Dosage: UNK
  2. AMGEVITA [Suspect]
     Active Substance: ADALIMUMAB
     Indication: CROHN^S DISEASE
     Dosage: 40 MILLIGRAM, Q2WK
     Route: 058
     Dates: start: 20181207, end: 20190801
  3. ADCAL [CALCIUM CARBONATE] [Concomitant]
     Dosage: UNK
  4. RISEDRONIC ACID [Concomitant]
     Active Substance: RISEDRONIC ACID
     Dosage: UNK
  5. FOLIC ACID. [Concomitant]
     Active Substance: FOLIC ACID
     Dosage: UNK
  6. SPASMONAL [ALVERINE CITRATE] [Concomitant]
     Dosage: UNK
  7. SALOFALK [MESALAZINE] [Concomitant]
     Active Substance: MESALAMINE
     Dosage: UNK
  8. SALOFALK [MESALAZINE] [Concomitant]
     Active Substance: MESALAMINE
     Dosage: UNK
  9. ENSURE [Concomitant]
     Active Substance: AMINO ACIDS\DEXTROSE\ELECTROLYTES NOS\SOYBEAN OIL\VITAMINS
     Dosage: UNK

REACTIONS (4)
  - Product substitution issue [Unknown]
  - Crohn^s disease [Unknown]
  - Photosensitivity reaction [Recovered/Resolved]
  - Eye pruritus [Unknown]
